FAERS Safety Report 15369624 (Version 1)
Quarter: 2018Q3

REPORT INFORMATION
  Report Type: Spontaneous
  Country: ES (occurrence: ES)
  Receive Date: 20180911
  Receipt Date: 20180911
  Transmission Date: 20181010
  Serious: Yes (Life-Threatening, Hospitalization)
  Sender: FDA-Public Use
  Company Number: ES-ZYDUS-026873

PATIENT
  Age: 69 Year
  Sex: Female

DRUGS (7)
  1. SEVOFLURANE. [Suspect]
     Active Substance: SEVOFLURANE
     Indication: GENERAL ANAESTHESIA
     Dosage: 1,5 CAM ()
     Route: 055
     Dates: start: 20180205, end: 20180205
  2. MANNITOL. [Suspect]
     Active Substance: MANNITOL
     Indication: PRODUCT USED FOR UNKNOWN INDICATION
     Dosage: DOS BOLOS DE MANITOL ()
     Route: 065
     Dates: start: 20180127
  3. METFORMIN [Suspect]
     Active Substance: METFORMIN HYDROCHLORIDE
     Indication: DIABETES MELLITUS
     Route: 065
  4. SITAGLIPTIN [Suspect]
     Active Substance: SITAGLIPTIN
     Indication: PRODUCT USED FOR UNKNOWN INDICATION
     Route: 065
  5. RANITIDINE. [Concomitant]
     Active Substance: RANITIDINE
     Indication: PRODUCT USED FOR UNKNOWN INDICATION
     Route: 065
  6. ATORVASTATIN [Concomitant]
     Active Substance: ATORVASTATIN
     Indication: PRODUCT USED FOR UNKNOWN INDICATION
     Route: 065
  7. ACETAZOLAMIDE. [Suspect]
     Active Substance: ACETAZOLAMIDE
     Indication: GLAUCOMA
     Route: 048
     Dates: start: 20180127, end: 20180205

REACTIONS (2)
  - Acidosis [Not Recovered/Not Resolved]
  - Cardio-respiratory arrest [Not Recovered/Not Resolved]

NARRATIVE: CASE EVENT DATE: 20180206
